FAERS Safety Report 12356452 (Version 3)
Quarter: 2016Q3

REPORT INFORMATION
  Report Type: Spontaneous
  Country: US (occurrence: US)
  Receive Date: 20160511
  Receipt Date: 20160823
  Transmission Date: 20161109
  Serious: Yes (Other)
  Sender: FDA-Public Use
  Company Number: US-PFIZER INC-2016240861

PATIENT
  Age: 13 Year
  Sex: Female
  Weight: 48 kg

DRUGS (8)
  1. DEXTROMETHORPHAN [Suspect]
     Active Substance: DEXTROMETHORPHAN
     Indication: COUGH
     Dosage: 2 PILLS, 1X/DAY (IN THE EVENING)
     Route: 048
     Dates: start: 20160425, end: 20160426
  2. WAL-FEX [Suspect]
     Active Substance: FEXOFENADINE HYDROCHLORIDE
     Indication: COUGH
  3. WAL-FEX [Suspect]
     Active Substance: FEXOFENADINE HYDROCHLORIDE
     Indication: RHINORRHOEA
     Dosage: 60 MG, 1X/DAY (IN THE EVENING)
     Route: 048
     Dates: start: 20160425, end: 20160427
  4. ROBITUSSIN (GUAIFENESIN) [Suspect]
     Active Substance: GUAIFENESIN
     Indication: COUGH
     Dosage: 30 MG, 1X/DAY (2X15 MG CAPSULE TAKEN AT CAPSULE BEDTIME)
     Route: 048
     Dates: start: 20160427, end: 20160427
  5. ROBITUSSIN (GUAIFENESIN) [Suspect]
     Active Substance: GUAIFENESIN
     Indication: RHINORRHOEA
  6. DEXTROMETHORPHAN [Suspect]
     Active Substance: DEXTROMETHORPHAN
     Indication: OROPHARYNGEAL PAIN
  7. DEXTROMETHORPHAN [Suspect]
     Active Substance: DEXTROMETHORPHAN
     Indication: RHINORRHOEA
  8. ROBITUSSIN (GUAIFENESIN) [Suspect]
     Active Substance: GUAIFENESIN
     Indication: OROPHARYNGEAL PAIN

REACTIONS (5)
  - Self-injurious ideation [Recovered/Resolved]
  - Mental status changes [Unknown]
  - Anxiety [Recovered/Resolved]
  - Mental disorder [Recovered/Resolved]
  - Drug ineffective [Recovered/Resolved]

NARRATIVE: CASE EVENT DATE: 201604
